FAERS Safety Report 15593741 (Version 4)
Quarter: 2020Q3

REPORT INFORMATION
  Report Type: Spontaneous
  Country: US (occurrence: US)
  Receive Date: 20181107
  Receipt Date: 20200901
  Transmission Date: 20201102
  Serious: No
  Sender: FDA-Public Use
  Company Number: US-PFIZER INC-2018454674

PATIENT
  Age: 63 Year
  Sex: Male
  Weight: 80.74 kg

DRUGS (2)
  1. LYRICA [Suspect]
     Active Substance: PREGABALIN
     Indication: NERVE INJURY
     Dosage: 150 MG, 1X/DAY
     Dates: start: 202007
  2. LYRICA [Suspect]
     Active Substance: PREGABALIN
     Indication: SPINAL OPERATION
     Dosage: 150 MG, 3X/DAY (ONE IN THE MORNING, ONE AFTER LUNCH AND ONE AT BEDTIME)
     Dates: start: 2015, end: 202007

REACTIONS (2)
  - Intentional product use issue [Unknown]
  - Pain [Unknown]

NARRATIVE: CASE EVENT DATE: 202007
